FAERS Safety Report 17406847 (Version 1)
Quarter: 2020Q1

REPORT INFORMATION
  Report Type: Spontaneous
  Country: US (occurrence: US)
  Receive Date: 20200212
  Receipt Date: 20200212
  Transmission Date: 20200409
  Serious: Yes (Other)
  Sender: FDA-Public Use
  Company Number: US-TEVA-2020-US-1183171

PATIENT
  Sex: Female

DRUGS (3)
  1. CLONIDINE. [Suspect]
     Active Substance: CLONIDINE
     Dosage: EXTENDED-RELEASE TABLETS
     Route: 065
  2. CLONIDINE. [Suspect]
     Active Substance: CLONIDINE
     Route: 065
  3. CLONIDINE. [Suspect]
     Active Substance: CLONIDINE
     Route: 065

REACTIONS (3)
  - Heart rate abnormal [Unknown]
  - Suicidal ideation [Unknown]
  - Depression [Unknown]
